FAERS Safety Report 19503046 (Version 1)
Quarter: 2021Q3

REPORT INFORMATION
  Report Type: Spontaneous
  Country: US (occurrence: US)
  Receive Date: 20210708
  Receipt Date: 20210708
  Transmission Date: 20211014
  Serious: Yes (Other)
  Sender: FDA-Public Use
  Company Number: US-STRIDES ARCOLAB LIMITED-2021SP003914

PATIENT
  Age: 6 Decade
  Sex: Female

DRUGS (5)
  1. CABERGOLINE. [Suspect]
     Active Substance: CABERGOLINE
     Indication: PITUITARY TUMOUR BENIGN
     Dosage: UNK
     Route: 065
  2. KETOCONAZOLE. [Suspect]
     Active Substance: KETOCONAZOLE
     Indication: PITUITARY TUMOUR BENIGN
     Dosage: UNK
     Route: 065
  3. PASIREOTIDE. [Concomitant]
     Active Substance: PASIREOTIDE
     Indication: PITUITARY TUMOUR BENIGN
     Dosage: UNK
     Route: 065
  4. CAPECITABINE. [Concomitant]
     Active Substance: CAPECITABINE
     Indication: PITUITARY TUMOUR BENIGN
     Dosage: 1500 MILLIGRAM/SQ. METER, (MAXIMUM DOSE 2500) INTO 2 DIVIDED DOSES ON DAYS 1 THROUGH 14
     Route: 065
  5. TEMOZOLOMIDE. [Concomitant]
     Active Substance: TEMOZOLOMIDE
     Indication: PITUITARY TUMOUR BENIGN
     Dosage: 150 TO 200 150 TO 200 MG/M2/DAY DIVIDED TO 2 DOSES ON DAYS 10 TO 14 OF 28 DAYS CYCLES
     Route: 065

REACTIONS (1)
  - Drug ineffective for unapproved indication [Unknown]
